FAERS Safety Report 7920823-1 (Version None)
Quarter: 2011Q4

REPORT INFORMATION
  Report Type: 
  Country: None (occurrence: None)
  Receive Date: 20111117
  Receipt Date: 20110720
  Transmission Date: 20120403
  Serious: No
  Sender: FDA-Public Use
  Company Number: US-GLAXOSMITHKLINE-A0937564A

PATIENT
  Sex: Male

DRUGS (2)
  1. STOOL SOFTENER [Concomitant]
  2. VOTRIENT [Suspect]
     Indication: RENAL CELL CARCINOMA
     Route: 048
     Dates: start: 20110701

REACTIONS (3)
  - CHEST DISCOMFORT [None]
  - PAIN IN EXTREMITY [None]
  - PALPITATIONS [None]
